FAERS Safety Report 7548085-8 (Version None)
Quarter: 2011Q2

REPORT INFORMATION
  Report Type: 
  Country: None (occurrence: None)
  Receive Date: 20110615
  Receipt Date: 20090514
  Transmission Date: 20111010
  Serious: Yes (Hospitalization, Other)
  Sender: FDA-Public Use
  Company Number: US-BAYER-200923724NA

PATIENT
  Age: 60 Year
  Sex: Male
  Weight: 95 kg

DRUGS (11)
  1. NITROGLYCERIN [Concomitant]
     Dosage: UNK
     Route: 042
     Dates: start: 20060824
  2. INSULIN [Concomitant]
     Dosage: 20 U, UNK
     Dates: start: 20060824
  3. ACETYLSALICYLIC ACID SRT [Concomitant]
     Route: 048
  4. HEPARIN [Concomitant]
     Dosage: 300 MG
     Dates: start: 20060824
  5. TRASYLOL [Suspect]
     Indication: MITRAL VALVE REPLACEMENT
     Dosage: LOADING DOSE 200ML THEN INFUSION OF 50 CC/HOUR
     Route: 042
     Dates: start: 20060824, end: 20060824
  6. PLAVIX [Concomitant]
     Dosage: 75MG DAILY
     Route: 048
  7. DIOVAN [Concomitant]
     Dosage: 80MG DAILY
     Route: 048
  8. METOPROLOL [Concomitant]
     Dosage: 25MG 2XDAY
     Route: 048
  9. LIPITOR [Concomitant]
     Dosage: 10MG DAILY
     Route: 048
  10. TRASYLOL [Suspect]
     Indication: CORONARY ARTERY BYPASS
  11. PROTAMINE SULFATE [Concomitant]
     Dosage: 300 MG
     Route: 042
     Dates: start: 20060824

REACTIONS (14)
  - AMNESIA [None]
  - STRESS [None]
  - MULTI-ORGAN FAILURE [None]
  - COMA [None]
  - FEAR [None]
  - PAIN [None]
  - RENAL IMPAIRMENT [None]
  - RENAL INJURY [None]
  - ANXIETY [None]
  - INJURY [None]
  - RENAL FAILURE [None]
  - ANHEDONIA [None]
  - EMOTIONAL DISTRESS [None]
  - UNEVALUABLE EVENT [None]
